FAERS Safety Report 21257197 (Version 1)
Quarter: 2022Q3

REPORT INFORMATION
  Report Type: Spontaneous
  Country: None (occurrence: US)
  Receive Date: 20220826
  Receipt Date: 20220826
  Transmission Date: 20221026
  Serious: No
  Sender: FDA-Public Use
  Company Number: US-Ajanta Pharma USA Inc.-2132247

PATIENT
  Age: 54 Year
  Sex: Female

DRUGS (2)
  1. CHLORTHALIDONE [Suspect]
     Active Substance: CHLORTHALIDONE
     Indication: Product used for unknown indication
  2. TYMLOS [Suspect]
     Active Substance: ABALOPARATIDE

REACTIONS (2)
  - Toothache [Unknown]
  - Product dose omission in error [Unknown]
